FAERS Safety Report 5813287-5 (Version None)
Quarter: 2008Q3

REPORT INFORMATION
  Report Type: 
  Country: None (occurrence: None)
  Receive Date: 20080717
  Receipt Date: 20080710
  Transmission Date: 20090109
  Serious: Yes (Other)
  Sender: FDA-Public Use
  Company Number: US-JNJFOC-20080703311

PATIENT
  Sex: Female
  Weight: 63.5 kg

DRUGS (1)
  1. LEVAQUIN [Suspect]
     Indication: ANIMAL BITE
     Route: 048

REACTIONS (5)
  - DEPRESSION [None]
  - MEMORY IMPAIRMENT [None]
  - MENISCUS LESION [None]
  - MUSCULOSKELETAL PAIN [None]
  - SENSORY DISTURBANCE [None]
